FAERS Safety Report 23944210 (Version 1)
Quarter: 2024Q2

REPORT INFORMATION
  Report Type: Other
  Country: IN (occurrence: IN)
  Receive Date: 20240606
  Receipt Date: 20240606
  Transmission Date: 20240715
  Serious: Yes (Other)
  Sender: FDA-Public Use
  Company Number: IN-DEXPHARM-2024-1563

PATIENT
  Age: 37 Year
  Sex: Female

DRUGS (2)
  1. DEXAMETHASONE [Interacting]
     Active Substance: DEXAMETHASONE
     Dosage: TAB DEXAMETHASONE 0.5 MG TWICE A DAY SINCE NEARLY 8 YEARS
  2. CYPROHEPTADINE [Interacting]
     Active Substance: CYPROHEPTADINE
     Dosage: ^TAB CYPROHEPTADINE 4 MG^

REACTIONS (7)
  - Drug abuse [Recovered/Resolved]
  - Sleep disorder [Recovered/Resolved]
  - Restlessness [Recovered/Resolved]
  - Pain [Recovered/Resolved]
  - Diarrhoea [Recovered/Resolved]
  - Withdrawal syndrome [Recovered/Resolved]
  - Drug interaction [Recovered/Resolved]
